FAERS Safety Report 9102306 (Version 1)
Quarter: 2013Q1

REPORT INFORMATION
  Report Type: Spontaneous
  Country: US (occurrence: US)
  Receive Date: 20130219
  Receipt Date: 20130219
  Transmission Date: 20140127
  Serious: No
  Sender: FDA-Public Use
  Company Number: US-B.I. PHARMACEUTICALS,INC./RIDGEFIELD-2013-BI-04200BP

PATIENT
  Sex: Male
  Weight: 84 kg

DRUGS (8)
  1. PRADAXA [Suspect]
     Indication: ATRIAL FIBRILLATION
     Dosage: 300 MG
     Route: 048
     Dates: start: 2011
  2. MIRTAZAPINE [Concomitant]
     Dosage: 7.5 MG
     Route: 048
  3. ASPIRIN [Concomitant]
     Dosage: 81 MG
     Route: 048
  4. DIGOXIN [Concomitant]
     Dosage: 0.125 MCG
     Route: 048
  5. MIDODRINE [Concomitant]
     Indication: DIZZINESS
     Dosage: 10 MG
     Route: 048
  6. VITAMIN B6 [Concomitant]
     Route: 048
  7. POLYETHYLENE GLYCOL [Concomitant]
     Route: 048
  8. MULTIVITAMIN [Concomitant]
     Route: 048

REACTIONS (1)
  - Periodontal disease [Not Recovered/Not Resolved]
